FAERS Safety Report 12299917 (Version 2)
Quarter: 2019Q4

REPORT INFORMATION
  Report Type: Spontaneous
  Country: GB (occurrence: JP)
  Receive Date: 20160425
  Receipt Date: 20191107
  Transmission Date: 20200122
  Serious: Yes (Death)
  Sender: FDA-Public Use
  Company Number: JP-BAYER-2016-076778

PATIENT
  Age: 67 Year
  Sex: Female

DRUGS (4)
  1. CIPROXAN-I.V.400 [Suspect]
     Active Substance: CIPROFLOXACIN
  2. RIFABUTIN. [Suspect]
     Active Substance: RIFABUTIN
  3. CLARITHROMYCIN. [Suspect]
     Active Substance: CLARITHROMYCIN
  4. ETHAMBUTOL [Suspect]
     Active Substance: ETHAMBUTOL HYDROCHLORIDE

REACTIONS (5)
  - Mycobacterial infection [Fatal]
  - Myelodysplastic syndrome [Fatal]
  - Osteomyelitis [Fatal]
  - Thrombocytopenia [None]
  - Neuropathy peripheral [None]
